FAERS Safety Report 12137777 (Version 1)
Quarter: 2016Q1

REPORT INFORMATION
  Report Type: Spontaneous
  Country: US (occurrence: US)
  Receive Date: 20160302
  Receipt Date: 20160302
  Transmission Date: 20160526
  Serious: No
  Sender: FDA-Public Use
  Company Number: US-MISSION PHARMACAL COMPANY-1048571

PATIENT
  Age: 54 Year
  Sex: Female

DRUGS (1)
  1. THIOLA [Suspect]
     Active Substance: TIOPRONIN
     Indication: AMINO ACID METABOLISM DISORDER
     Dates: start: 20150118, end: 20160204

REACTIONS (4)
  - Arthralgia [Unknown]
  - Hypersensitivity [None]
  - Lichen planus [Unknown]
  - Malaise [Unknown]
